FAERS Safety Report 6347707-7 (Version None)
Quarter: 2009Q3

REPORT INFORMATION
  Report Type: 
  Country: None (occurrence: None)
  Receive Date: 20090910
  Receipt Date: 20090902
  Transmission Date: 20100115
  Serious: Yes (Hospitalization, Other)
  Sender: FDA-Public Use
  Company Number: BR-ABBOTT-09P-020-0576431-00

PATIENT
  Sex: Female
  Weight: 67.5 kg

DRUGS (4)
  1. HUMIRA [Suspect]
     Indication: RHEUMATOID ARTHRITIS
     Route: 058
     Dates: start: 20081101, end: 20090625
  2. UNKNOWN TUBERCULOSIS TREATMENT [Suspect]
     Indication: TUBERCULOUS PLEURISY
  3. ARAVA [Concomitant]
     Indication: RHEUMATOID ARTHRITIS
     Route: 048
     Dates: start: 20060101
  4. METICORTEN [Concomitant]
     Indication: RHEUMATOID ARTHRITIS
     Route: 048
     Dates: start: 20030101

REACTIONS (18)
  - ALOPECIA [None]
  - ASTHENIA [None]
  - GAIT DISTURBANCE [None]
  - HEPATITIS [None]
  - HERPES ZOSTER [None]
  - HUNGER [None]
  - HYPERTENSION [None]
  - IMMUNODEFICIENCY [None]
  - INTESTINAL ULCER [None]
  - MALAISE [None]
  - MOBILITY DECREASED [None]
  - PULMONARY MASS [None]
  - RENAL MASS [None]
  - SKIN ULCER [None]
  - TREMOR [None]
  - TUBERCULOUS PLEURISY [None]
  - VOMITING [None]
  - WOUND [None]
